FAERS Safety Report 4696573-4 (Version None)
Quarter: 2005Q3

REPORT INFORMATION
  Report Type: 
  Country: None (occurrence: None)
  Receive Date: 20050620
  Receipt Date: 20050308
  Transmission Date: 20060218
  Serious: Yes (Other)
  Sender: FDA-Public Use
  Company Number: 200511925US

PATIENT
  Age: 87 Year
  Sex: Female

DRUGS (4)
  1. LANTUS [Suspect]
     Indication: DIABETES MELLITUS
     Dosage: 10 U QPM INJ
     Dates: start: 20050301
  2. OPTICLIK [Suspect]
     Indication: DIABETES MELLITUS
     Dates: start: 20050301
  3. NOVOLOG [Concomitant]
  4. PIOGLITAZONE HCL [Concomitant]

REACTIONS (4)
  - BLOOD GLUCOSE INCREASED [None]
  - CONFUSIONAL STATE [None]
  - DISORIENTATION [None]
  - HYPOGLYCAEMIA [None]
